FAERS Safety Report 4444529-9 (Version None)
Quarter: 2004Q3

REPORT INFORMATION
  Report Type: 
  Country: None (occurrence: None)
  Receive Date: 20040902
  Receipt Date: 20040818
  Transmission Date: 20050211
  Serious: Yes (Hospitalization, Other)
  Sender: FDA-Public Use
  Company Number: 04P-163-0270952-00

PATIENT
  Age: 69 Year
  Sex: Female

DRUGS (10)
  1. DEPAKOTE ER [Suspect]
     Indication: BIPOLAR DISORDER
     Dosage: 1250 MG, AT BEDTIME, PER ORAL
     Route: 048
  2. THIORIDAZINE HCL [Concomitant]
  3. GLIBENCLAMIDE [Concomitant]
  4. OXYCOCET [Concomitant]
  5. OXYCODONE HCL [Concomitant]
  6. ASPIRIN [Concomitant]
  7. METOPROLOL TARTRATE [Concomitant]
  8. ZOCOR [Concomitant]
  9. NITROGLYCERIN [Concomitant]
  10. LISINOPRIL [Concomitant]

REACTIONS (9)
  - APPENDICITIS PERFORATED [None]
  - BACTERIAL INFECTION [None]
  - CHEST PAIN [None]
  - CLOSTRIDIAL INFECTION [None]
  - DIVERTICULAR PERFORATION [None]
  - ERYTHEMA [None]
  - GANGRENE [None]
  - LOWER RESPIRATORY TRACT INFECTION [None]
  - PULMONARY MYCOSIS [None]
